FAERS Safety Report 16309735 (Version 3)
Quarter: 2019Q2

REPORT INFORMATION
  Report Type: Report from Study
  Country: US (occurrence: US)
  Receive Date: 20190514
  Receipt Date: 20190610
  Transmission Date: 20190711
  Serious: Yes (Death, Hospitalization)
  Sender: FDA-Public Use
  Company Number: US-EISAI MEDICAL RESEARCH-EC-2019-055826

PATIENT
  Age: 64 Year
  Sex: Male
  Weight: 69 kg

DRUGS (13)
  1. TRAMADOL HCL-APAP [Concomitant]
  2. LENVIMA [Suspect]
     Active Substance: LENVATINIB
     Indication: HEPATOCELLULAR CARCINOMA
     Route: 048
     Dates: start: 201904, end: 2019
  3. LEXAPRO [Concomitant]
     Active Substance: ESCITALOPRAM OXALATE
  4. FUROSEMIDE. [Concomitant]
     Active Substance: FUROSEMIDE
  5. HALDOL [Concomitant]
     Active Substance: HALOPERIDOL
  6. RIFAXIMIN. [Concomitant]
     Active Substance: RIFAXIMIN
  7. LENVIMA [Suspect]
     Active Substance: LENVATINIB
     Route: 048
     Dates: start: 201905, end: 20190513
  8. FAMOTIDINE. [Concomitant]
     Active Substance: FAMOTIDINE
  9. ZOFRAN [Concomitant]
     Active Substance: ONDANSETRON HYDROCHLORIDE
  10. SENNA-EXTRA [Concomitant]
  11. OXYCODONE [Suspect]
     Active Substance: OXYCODONE
     Indication: PRODUCT USED FOR UNKNOWN INDICATION
     Dosage: UNKNOWN DOSE AND FREQUENCY
     Route: 065
  12. SPIRONOLACTONE W/HYDROCHLOROTHIAZIDE [Concomitant]
     Active Substance: HYDROCHLOROTHIAZIDE\SPIRONOLACTONE
  13. LACTULOSE. [Concomitant]
     Active Substance: LACTULOSE

REACTIONS (21)
  - Chromaturia [Unknown]
  - Organ failure [Fatal]
  - Disorientation [Unknown]
  - Hepatic encephalopathy [Unknown]
  - Oropharyngeal pain [Unknown]
  - Candida infection [Unknown]
  - Incontinence [Unknown]
  - Anger [Unknown]
  - Abdominal pain [Unknown]
  - Stomatitis [Unknown]
  - Confusional state [Unknown]
  - Suicidal ideation [Unknown]
  - Diarrhoea [Unknown]
  - Headache [Unknown]
  - Weight decreased [Unknown]
  - Feeling abnormal [Unknown]
  - Fatigue [Unknown]
  - Decreased appetite [Unknown]
  - Haematochezia [Unknown]
  - Ammonia increased [Unknown]
  - Asthenia [Unknown]

NARRATIVE: CASE EVENT DATE: 2019
